FAERS Safety Report 5812413-1 (Version None)
Quarter: 2008Q3

REPORT INFORMATION
  Report Type: 
  Country: None (occurrence: None)
  Receive Date: 20080716
  Receipt Date: 20080710
  Transmission Date: 20090109
  Serious: Yes (Death, Other)
  Sender: FDA-Public Use
  Company Number: GB-PFIZER INC-2008058036

PATIENT
  Age: 60 Year
  Weight: 84 kg

DRUGS (8)
  1. ATORVASTATIN CALCIUM [Suspect]
     Route: 048
  2. ACETYLSALICYLIC ACID SRT [Concomitant]
  3. BENDROFLUMETHIAZIDE [Concomitant]
  4. ACETAMINOPHEN W/ CODEINE [Concomitant]
  5. DOXAZOSIN MESYLATE [Concomitant]
  6. LOPERAMIDE HCL [Concomitant]
  7. SYMBICORT [Concomitant]
  8. VENTOLIN [Concomitant]

REACTIONS (2)
  - MULTI-ORGAN FAILURE [None]
  - PANCREATITIS ACUTE [None]
